FAERS Safety Report 20233127 (Version 1)
Quarter: 2021Q4

REPORT INFORMATION
  Report Type: Spontaneous
  Country: CN (occurrence: CN)
  Receive Date: 20211227
  Receipt Date: 20211227
  Transmission Date: 20220303
  Serious: Yes (Hospitalization)
  Sender: FDA-Public Use
  Company Number: CN-BoehringerIngelheim-2021-BI-145277

PATIENT
  Age: 76 Year
  Sex: Male

DRUGS (2)
  1. COMBIVENT [Suspect]
     Active Substance: ALBUTEROL SULFATE\IPRATROPIUM BROMIDE
     Indication: Chronic obstructive pulmonary disease
     Route: 055
     Dates: start: 20211206, end: 20211210
  2. SODIUM CHLORIDE [Concomitant]
     Active Substance: SODIUM CHLORIDE
     Indication: Drug therapy
     Route: 055
     Dates: start: 20211206, end: 20211210

REACTIONS (3)
  - Urinary retention [Recovering/Resolving]
  - Tachypnoea [Recovering/Resolving]
  - Blood gases abnormal [Recovering/Resolving]

NARRATIVE: CASE EVENT DATE: 20211210
